FAERS Safety Report 5067103-2 (Version None)
Quarter: 2006Q3

REPORT INFORMATION
  Report Type: 
  Country: None (occurrence: None)
  Receive Date: 20060801
  Receipt Date: 20051010
  Transmission Date: 20061208
  Serious: Yes (Hospitalization)
  Sender: FDA-Public Use
  Company Number: GB-BRISTOL-MYERS SQUIBB COMPANY-13138763

PATIENT
  Sex: Male
  Weight: 100 kg

DRUGS (9)
  1. ABILIFY [Suspect]
     Indication: SCHIZOPHRENIA
     Dosage: DOSAGE: INCREASED TO 30 MG DAILY.  INCREASED TO 45 MG DAILY DURING HOSPITALIZATION.
     Route: 048
  2. ZYPREXA [Suspect]
  3. CLOZARIL [Concomitant]
  4. GEODON [Concomitant]
  5. TRILEPTAL [Concomitant]
  6. SEROQUEL [Concomitant]
  7. PAXIL [Concomitant]
  8. KLONOPIN [Concomitant]
     Indication: ANXIETY
  9. TRICOR [Concomitant]

REACTIONS (12)
  - AGORAPHOBIA [None]
  - ANXIETY [None]
  - BLOOD GLUCOSE INCREASED [None]
  - BLOOD TRIGLYCERIDES INCREASED [None]
  - DRUG INTERACTION [None]
  - EUPHORIC MOOD [None]
  - HALLUCINATION [None]
  - HYPERHIDROSIS [None]
  - MUSCLE TWITCHING [None]
  - RASH [None]
  - TREMOR [None]
  - VISUAL DISTURBANCE [None]
